FAERS Safety Report 24731534 (Version 1)
Quarter: 2024Q4

REPORT INFORMATION
  Report Type: Report from Study
  Country: IN (occurrence: IN)
  Receive Date: 20241213
  Receipt Date: 20241213
  Transmission Date: 20250114
  Serious: Yes (Hospitalization, Other)
  Sender: NOVARTIS
  Company Number: IN-002147023-NVSC2020IN150472

PATIENT
  Age: 18 Year
  Sex: Female

DRUGS (4)
  1. TASIGNA [Suspect]
     Active Substance: NILOTINIB
     Indication: Chronic myeloid leukaemia
     Dosage: 300 MG, BID
     Route: 048
     Dates: start: 20190211, end: 20200511
  2. TASIGNA [Suspect]
     Active Substance: NILOTINIB
     Dosage: 300 MG, BID
     Route: 048
  3. TASIGNA [Suspect]
     Active Substance: NILOTINIB
     Dosage: 300 MG, BID
     Route: 048
     Dates: start: 20230808
  4. TASIGNA [Suspect]
     Active Substance: NILOTINIB
     Dosage: 150 MG
     Route: 048

REACTIONS (11)
  - Intra-abdominal fluid collection [Unknown]
  - Haemoglobin decreased [Unknown]
  - Philadelphia chromosome positive [Unknown]
  - Laboratory test abnormal [Unknown]
  - Ovarian cancer [Unknown]
  - Ascites [Unknown]
  - Drug ineffective [Not Recovered/Not Resolved]
  - Pruritus [Unknown]
  - Pleural effusion [Unknown]
  - Ovarian cyst [Unknown]
  - Lymphadenopathy [Unknown]

NARRATIVE: CASE EVENT DATE: 20200511
